FAERS Safety Report 7408153-8 (Version None)
Quarter: 2011Q2

REPORT INFORMATION
  Report Type: 
  Country: None (occurrence: None)
  Receive Date: 20110412
  Receipt Date: 20101119
  Transmission Date: 20111010
  Serious: Yes (Other)
  Sender: FDA-Public Use
  Company Number: US-BAYER-201029559NA

PATIENT
  Age: 30 Year
  Sex: Female
  Weight: 90.703 kg

DRUGS (13)
  1. ULTRAM [Concomitant]
     Route: 048
  2. VICODIN [Concomitant]
     Indication: MIGRAINE
  3. YASMIN [Suspect]
     Indication: CONTRACEPTION
     Route: 048
     Dates: start: 20060501, end: 20080601
  4. YASMIN [Suspect]
     Indication: PREMENSTRUAL SYNDROME
  5. MOTRIN [Concomitant]
  6. VICODIN [Concomitant]
     Indication: ARTHRALGIA
  7. TRAMADOL [Concomitant]
     Indication: ARTHRALGIA
  8. ZOLOFT [Concomitant]
     Indication: DEPRESSION
     Dosage: 50 MG, UNK
     Route: 048
  9. PROPOXYPHENE NAPSYLATE W/PARACETAMOL [Concomitant]
     Dosage: 100/650
  10. DILAUDID [Concomitant]
     Indication: PAIN
     Dosage: 1 MG, UNK
  11. YASMIN [Suspect]
     Indication: ACNE
  12. TRAMADOL [Concomitant]
     Indication: MIGRAINE
     Dosage: 50 MG, UNK
  13. HYDROCODONE BITARTRATE AND ACETAMINOPHEN [Concomitant]
     Dosage: 5/500

REACTIONS (4)
  - BILIARY DYSKINESIA [None]
  - CHOLECYSTITIS CHRONIC [None]
  - CHOLELITHIASIS [None]
  - GALLBLADDER PAIN [None]
